FAERS Safety Report 21478435 (Version 2)
Quarter: 2023Q1

REPORT INFORMATION
  Report Type: Report from Study
  Country: US (occurrence: US)
  Receive Date: 20221019
  Receipt Date: 20230116
  Transmission Date: 20230417
  Serious: No
  Sender: FDA-Public Use
  Company Number: US-ABBVIE-4158999

PATIENT
  Sex: Male

DRUGS (2)
  1. SKYRIZI [Suspect]
     Active Substance: RISANKIZUMAB-RZAA
     Indication: Psoriasis
     Dosage: WEEK 0, WEEK 4, THEN EVERY 12 WEEKS THEREAFTER, FORM STRENGTH 15 MILLIGRAMS
     Route: 058
     Dates: start: 20220801
  2. SKYRIZI [Suspect]
     Active Substance: RISANKIZUMAB-RZAA
     Route: 058
     Dates: start: 20220801

REACTIONS (3)
  - Cellulitis [Recovered/Resolved]
  - Psoriasis [Recovering/Resolving]
  - Pain [Unknown]
